FAERS Safety Report 4987889-2 (Version None)
Quarter: 2006Q1

REPORT INFORMATION
  Report Type: 
  Country: None (occurrence: None)
  Receive Date: 20060309
  Receipt Date: 20051220
  Transmission Date: 20060701
  Serious: Yes (Other)
  Sender: FDA-Public Use
  Company Number: 429346

PATIENT

DRUGS (2)
  1. ISOTRETINOIN [Suspect]
     Indication: ACNE
     Dosage: ORAL
     Route: 048
     Dates: start: 20041105, end: 20050406
  2. MIRENA [Suspect]
     Indication: CONTRACEPTION
     Dosage: INTRAUTERINE
     Route: 015

REACTIONS (2)
  - NO ADVERSE EFFECT [None]
  - PREGNANCY [None]
